FAERS Safety Report 13701256 (Version 1)
Quarter: 2017Q2

REPORT INFORMATION
  Report Type: Spontaneous
  Country: US (occurrence: US)
  Receive Date: 20170628
  Receipt Date: 20170628
  Transmission Date: 20170830
  Serious: Yes (Hospitalization)
  Sender: FDA-Public Use
  Company Number: None

PATIENT
  Age: 3 Year
  Sex: Male

DRUGS (6)
  1. ASPIRIN. [Concomitant]
     Active Substance: ASPIRIN
  2. GENERALAC [Concomitant]
  3. TADALAFIL [Concomitant]
     Active Substance: TADALAFIL
  4. RANITIDINE. [Concomitant]
     Active Substance: RANITIDINE
  5. FUROSEMIDE. [Concomitant]
     Active Substance: FUROSEMIDE
  6. TRACLEER [Suspect]
     Active Substance: BOSENTAN
     Indication: PULMONARY ARTERIAL HYPERTENSION
     Dosage: 31.25MG BID
     Route: 048
     Dates: start: 20170508, end: 20170611

REACTIONS (5)
  - Rash [None]
  - Abdominal pain [None]
  - Vomiting [None]
  - Flushing [None]
  - Pyrexia [None]

NARRATIVE: CASE EVENT DATE: 20170611
